FAERS Safety Report 4299561-5 (Version None)
Quarter: 2004Q1

REPORT INFORMATION
  Report Type: 
  Country: None (occurrence: None)
  Receive Date: 20040217
  Receipt Date: 20040205
  Transmission Date: 20041129
  Serious: No
  Sender: FDA-Public Use
  Company Number: 2004197590US

PATIENT
  Age: 55 Year
  Sex: Male
  Weight: 88.9 kg

DRUGS (11)
  1. CAMPTOSAR [Suspect]
     Indication: METASTATIC NEOPLASM
     Dosage: 65 MG/M2, DAYS 1+8, CYCLIC, IV BOLUS
     Route: 040
     Dates: start: 20030910
  2. FLUOROURACIL [Suspect]
     Indication: METASTATIC NEOPLASM
     Dosage: 260 M G/M2, DAYS 1+8 CYCLIC, IV
     Route: 042
     Dates: start: 20030910
  3. CISPLATIN [Suspect]
     Indication: METASTATIC NEOPLASM
     Dosage: 25 MG/M2, DAYS 1+8, CYCLIC, IV BOLUS
     Route: 040
     Dates: start: 20030910
  4. AMBIEN [Concomitant]
  5. ATENOLOL [Concomitant]
  6. COMPAZINE (PROCHLORPERAZINE ESIDYLATE) [Concomitant]
  7. COUMADIN [Concomitant]
  8. IBUPROFEN [Concomitant]
  9. OXYCODONE (OXYCODONE) [Concomitant]
  10. ZOFRAN [Concomitant]
  11. VITAMIN B6 [Concomitant]

REACTIONS (3)
  - ARTHRALGIA [None]
  - DRUG INTERACTION [None]
  - PROTHROMBIN TIME PROLONGED [None]
